FAERS Safety Report 21250139 (Version 1)
Quarter: 2022Q3

REPORT INFORMATION
  Report Type: Spontaneous
  Country: None (occurrence: FR)
  Receive Date: 20220824
  Receipt Date: 20220824
  Transmission Date: 20221027
  Serious: Yes (Life-Threatening)
  Sender: FDA-Public Use
  Company Number: FR-AFSSAPSTS20221811

PATIENT
  Age: 53 Year
  Sex: Male

DRUGS (1)
  1. OXYGEN [Suspect]
     Active Substance: OXYGEN
     Indication: Chronic obstructive pulmonary disease
     Route: 055
     Dates: start: 20190511

REACTIONS (3)
  - Tobacco interaction [Recovering/Resolving]
  - Thermal burn [Recovering/Resolving]
  - Device use error [Recovering/Resolving]

NARRATIVE: CASE EVENT DATE: 20220723
